FAERS Safety Report 5579074-0 (Version None)
Quarter: 2008Q1

REPORT INFORMATION
  Report Type: 
  Country: None (occurrence: None)
  Receive Date: 20080102
  Receipt Date: 20071221
  Transmission Date: 20080703
  Serious: Yes (Other)
  Sender: FDA-Public Use
  Company Number: DE-ASTRAZENECA-2007PK02664

PATIENT
  Age: 23 Year
  Sex: Female

DRUGS (2)
  1. SEROQUEL [Suspect]
     Route: 048
     Dates: start: 20071016
  2. ORAL CONTRACEPTIVE [Concomitant]

REACTIONS (2)
  - HYPONATRAEMIA [None]
  - OBSESSIVE-COMPULSIVE PERSONALITY DISORDER [None]
